FAERS Safety Report 18962849 (Version 1)
Quarter: 2021Q1

REPORT INFORMATION
  Report Type: Spontaneous
  Country: US (occurrence: US)
  Receive Date: 20210302
  Receipt Date: 20210302
  Transmission Date: 20210420
  Serious: Yes (Hospitalization)
  Sender: FDA-Public Use
  Company Number: None

PATIENT
  Age: 59 Year
  Sex: Female
  Weight: 801.11 kg

DRUGS (3)
  1. VELCADE [Suspect]
     Active Substance: BORTEZOMIB
     Dates: end: 20160526
  2. BENDAMUSTINE HYDROCHLORIDE 360MG [Suspect]
     Active Substance: BENDAMUSTINE HYDROCHLORIDE
     Dates: end: 20160527
  3. RITUXIMAB (MOAB C2B8 ANTI CD20, CHIMERIC) 150MG [Suspect]
     Active Substance: RITUXIMAB
     Dates: end: 20160526

REACTIONS (6)
  - Asthenia [None]
  - Fatigue [None]
  - Pyrexia [None]
  - Pancytopenia [None]
  - Dizziness [None]
  - Blood urine present [None]

NARRATIVE: CASE EVENT DATE: 20160602
